FAERS Safety Report 19304490 (Version 2)
Quarter: 2021Q3

REPORT INFORMATION
  Report Type: Report from Study
  Country: US (occurrence: US)
  Receive Date: 20210525
  Receipt Date: 20210713
  Transmission Date: 20211014
  Serious: Yes (Death, Other)
  Sender: FDA-Public Use
  Company Number: US-EXELIXIS-CABO-21039563

PATIENT
  Age: 75 Year
  Sex: Male

DRUGS (1)
  1. CABOMETYX [Suspect]
     Active Substance: CABOZANTINIB S-MALATE
     Indication: RENAL CANCER
     Dosage: 40 MG, QD
     Route: 048
     Dates: start: 20210330, end: 20210428

REACTIONS (4)
  - Fatigue [Unknown]
  - Cerebral haemorrhage [Unknown]
  - Death [Fatal]
  - Wound [Unknown]

NARRATIVE: CASE EVENT DATE: 20210405
